FAERS Safety Report 17620133 (Version 2)
Quarter: 2020Q2

REPORT INFORMATION
  Report Type: Report from Study
  Country: US (occurrence: US)
  Receive Date: 20200403
  Receipt Date: 20200526
  Transmission Date: 20200713
  Serious: Yes (Other)
  Sender: FDA-Public Use
  Company Number: US-BIOGEN-2020BI00856138

PATIENT
  Age: 49 Year
  Sex: Male

DRUGS (2)
  1. TECFIDERA [Suspect]
     Active Substance: DIMETHYL FUMARATE
     Dosage: MAINTENANCE DOSE
     Route: 048
  2. TECFIDERA [Suspect]
     Active Substance: DIMETHYL FUMARATE
     Indication: MULTIPLE SCLEROSIS
     Dosage: STARTING DOSE
     Route: 048
     Dates: start: 201406

REACTIONS (8)
  - Gastrointestinal disorder [Unknown]
  - Gait deviation [Unknown]
  - Neuralgia [Unknown]
  - Anxiety [Unknown]
  - Cerebral atrophy [Unknown]
  - Vision blurred [Unknown]
  - Lacunar infarction [Unknown]
  - Blepharospasm [Unknown]

NARRATIVE: CASE EVENT DATE: 201909
